FAERS Safety Report 21559380 (Version 1)
Quarter: 2022Q4

REPORT INFORMATION
  Report Type: Spontaneous
  Country: US (occurrence: US)
  Receive Date: 20221107
  Receipt Date: 20221107
  Transmission Date: 20230113
  Serious: Yes (Hospitalization, Other)
  Sender: FDA-Public Use
  Company Number: US-APOTEX-2022AP014929

PATIENT
  Age: 14 Month
  Sex: Male

DRUGS (1)
  1. FENTANYL [Suspect]
     Active Substance: FENTANYL
     Indication: Product used for unknown indication
     Dosage: UNK
     Route: 065

REACTIONS (7)
  - Toxicity to various agents [Recovered/Resolved]
  - Foreign body in gastrointestinal tract [Recovered/Resolved]
  - Abnormal faeces [Recovered/Resolved]
  - Depressed level of consciousness [Recovered/Resolved]
  - Miosis [Recovered/Resolved]
  - Bradypnoea [Recovered/Resolved]
  - Somnolence [Recovered/Resolved]
